FAERS Safety Report 18511222 (Version 1)
Quarter: 2020Q4

REPORT INFORMATION
  Report Type: Spontaneous
  Country: US (occurrence: US)
  Receive Date: 20201117
  Receipt Date: 20201117
  Transmission Date: 20210114
  Serious: Yes (Other)
  Sender: FDA-Public Use
  Company Number: US-PIERREL PHARMA S.P.A.-2020PIR00029

PATIENT
  Age: 80 Year
  Sex: Female

DRUGS (3)
  1. LOSARTAN. [Concomitant]
     Active Substance: LOSARTAN
  2. ORABLOC [Suspect]
     Active Substance: ARTICAINE HYDROCHLORIDE\EPINEPHRINE BITARTRATE
     Indication: ARTIFICIAL CROWN PROCEDURE
  3. ORABLOC [Suspect]
     Active Substance: ARTICAINE HYDROCHLORIDE\EPINEPHRINE BITARTRATE
     Indication: DENTAL LOCAL ANAESTHESIA
     Dosage: 2 DOSAGE UNITS OVER A ONE HOUR PERIOD AROUND TOOTH #11
     Dates: start: 20200818, end: 20200818

REACTIONS (4)
  - Systolic hypertension [Unknown]
  - Panic attack [Unknown]
  - Arrhythmia [Unknown]
  - Drug ineffective [Recovered/Resolved]

NARRATIVE: CASE EVENT DATE: 20200818
